FAERS Safety Report 21041152 (Version 1)
Quarter: 2022Q3

REPORT INFORMATION
  Report Type: Spontaneous
  Country: FR (occurrence: FR)
  Receive Date: 20220705
  Receipt Date: 20220705
  Transmission Date: 20221027
  Serious: Yes (Death, Other)
  Sender: FDA-Public Use
  Company Number: FR-AFSSAPS-GR20221449

PATIENT
  Age: 91 Year
  Sex: Female
  Weight: 57.8 kg

DRUGS (2)
  1. ESCITALOPRAM [Suspect]
     Active Substance: ESCITALOPRAM OXALATE
     Indication: Mixed anxiety and depressive disorder
     Dosage: 10 MILLIGRAM
     Route: 048
     Dates: start: 20220117, end: 20220305
  2. OLANZAPINE [Concomitant]
     Active Substance: OLANZAPINE
     Indication: Dementia
     Dosage: 5 MILLIGRAM
     Route: 048
     Dates: start: 20220117, end: 20220305

REACTIONS (1)
  - Cerebral haemorrhage [Fatal]
